FAERS Safety Report 8431253-0 (Version None)
Quarter: 2012Q2

REPORT INFORMATION
  Report Type: 
  Country: None (occurrence: None)
  Receive Date: 20120613
  Receipt Date: 20120530
  Transmission Date: 20120825
  Serious: Yes (Other)
  Sender: FDA-Public Use
  Company Number: AT-AMGEN-AUTSP2012034608

PATIENT
  Age: 59 Year
  Sex: Female
  Weight: 72 kg

DRUGS (11)
  1. METHOTREXATE [Concomitant]
     Dosage: 10 MG, WEEKLY
  2. TIZANIDINE HYDROCHLORIDE [Concomitant]
     Dosage: 4 MG, AS NEEDED
  3. ENBREL [Suspect]
     Indication: RHEUMATOID ARTHRITIS
     Dosage: 50 MG, WEEKLY
     Dates: start: 20110501, end: 20120501
  4. PASSEDAN-NERVENTROPFEN [Concomitant]
     Dosage: 20 GTT AS NEEDED
  5. OLEOVIT-D3 [Concomitant]
     Dosage: 40 GTT, WEEKLY
  6. MAGNOSOLV [Concomitant]
     Dosage: 1 G, AS NEEDED
  7. NEUROBION FORTE                    /00358301/ [Concomitant]
     Dosage: 1 DF, 1X/DAY
  8. NEBIVOLOL [Concomitant]
     Dosage: 5 MG, 1X/DAY
  9. PARKEMED [Concomitant]
     Dosage: 500 MG, AS NEEDED
  10. PREDNISOLONE [Concomitant]
     Dosage: 5 MG, UNK
  11. FOLSAN [Concomitant]
     Dosage: 5 MG, HALF A TABLET DAILY EXCEPT ON THE DAY OF THE METHOTREXATE INTAKE

REACTIONS (1)
  - RECTAL CANCER [None]
